FAERS Safety Report 23884912 (Version 1)
Quarter: 2024Q2

REPORT INFORMATION
  Report Type: Spontaneous
  Country: CN (occurrence: CN)
  Receive Date: 20240522
  Receipt Date: 20240522
  Transmission Date: 20240716
  Serious: Yes (Hospitalization, Other)
  Sender: FDA-Public Use
  Company Number: CN-NOVAST LABORATORIES INC.-2024NOV000240

PATIENT

DRUGS (3)
  1. METOPROLOL SUCCINATE [Suspect]
     Active Substance: METOPROLOL SUCCINATE
     Indication: Coronary artery disease
     Dosage: 50 MILLIGRAM
     Route: 048
     Dates: start: 20240430, end: 20240503
  2. CLOPIDOGREL BISULFATE [Suspect]
     Active Substance: CLOPIDOGREL BISULFATE
     Indication: Coronary artery disease
     Dosage: 75 MILLIGRAM PER DAY
     Route: 048
     Dates: start: 20240430, end: 20240503
  3. HYZETIMIBE [Suspect]
     Active Substance: HYZETIMIBE
     Indication: Coronary artery disease
     Dosage: 10 MILLIGRAM PER DAY
     Route: 048
     Dates: start: 20240430, end: 20240503

REACTIONS (2)
  - Drug eruption [Recovering/Resolving]
  - Off label use [Unknown]

NARRATIVE: CASE EVENT DATE: 20240430
